FAERS Safety Report 4888698-5 (Version None)
Quarter: 2005Q4

REPORT INFORMATION
  Report Type: 
  Country: None (occurrence: None)
  Receive Date: 20051215
  Receipt Date: 20050720
  Transmission Date: 20060501
  Serious: Yes (Other)
  Sender: FDA-Public Use
  Company Number: 2005079008

PATIENT
  Age: 78 Year
  Sex: Female
  Weight: 56.6996 kg

DRUGS (5)
  1. BEXTRA [Suspect]
     Indication: ARTHRITIS
     Dosage: 20 MG (20 MG, 1 IN 1 D), ORAL
     Route: 048
  2. PREMARIN [Concomitant]
  3. FUROSEMIDE [Concomitant]
  4. TIZANIDINE HCL [Concomitant]
  5. ACIPHEX [Concomitant]

REACTIONS (7)
  - ABDOMINAL PAIN UPPER [None]
  - CARDIAC ANEURYSM [None]
  - CHEST PAIN [None]
  - COLONIC POLYP [None]
  - MALAISE [None]
  - MYOCARDIAL INFARCTION [None]
  - PAIN [None]
